FAERS Safety Report 4853322-4 (Version None)
Quarter: 2005Q4

REPORT INFORMATION
  Report Type: 
  Country: None (occurrence: None)
  Receive Date: 20051214
  Receipt Date: 20051205
  Transmission Date: 20060501
  Serious: Yes (Hospitalization)
  Sender: FDA-Public Use
  Company Number: FR-GLAXOSMITHKLINE-B0402965A

PATIENT
  Age: 74 Year
  Sex: Male
  Weight: 68 kg

DRUGS (8)
  1. FORTUM [Suspect]
     Indication: SEPSIS
     Dosage: 6G PER DAY
     Route: 051
     Dates: start: 20050719, end: 20051003
  2. ZYLORIC [Suspect]
     Dosage: 300MG PER DAY
     Route: 048
     Dates: start: 20050714, end: 20050930
  3. COLCHIMAX [Suspect]
     Indication: ARTHRITIS
     Dosage: 1UNIT PER DAY
     Route: 048
     Dates: start: 20050719, end: 20050930
  4. PREVISCAN [Suspect]
     Route: 048
     Dates: start: 20050917, end: 20050930
  5. TARGOCID [Suspect]
     Indication: SEPSIS
     Route: 051
     Dates: start: 20050719, end: 20051003
  6. NEXIUM [Concomitant]
     Dosage: 20MG PER DAY
     Route: 048
     Dates: start: 20050715, end: 20050930
  7. CIFLOX [Concomitant]
     Indication: SEPSIS
     Dosage: 1500MG PER DAY
     Dates: start: 20050719
  8. VFEND [Concomitant]
     Indication: SEPSIS
     Dosage: 400MG PER DAY
     Dates: start: 20050719

REACTIONS (4)
  - BLOOD CREATININE INCREASED [None]
  - EOSINOPHILIA [None]
  - NEUTROPENIA [None]
  - PLATELET COUNT DECREASED [None]
